FAERS Safety Report 16834760 (Version 2)
Quarter: 2019Q4

REPORT INFORMATION
  Report Type: Report from Study
  Country: US (occurrence: US)
  Receive Date: 20190920
  Receipt Date: 20191016
  Transmission Date: 20200122
  Serious: Yes (Hospitalization, Other)
  Sender: FDA-Public Use
  Company Number: US-GILEAD-2019-0425868

PATIENT
  Age: 60 Year
  Sex: Male
  Weight: 108.7 kg

DRUGS (39)
  1. AXICABTAGENE CILOLEUCEL [Suspect]
     Active Substance: AXICABTAGENE CILOLEUCEL
     Indication: DIFFUSE LARGE B-CELL LYMPHOMA
     Dosage: 68 ML, ONCE
     Route: 042
     Dates: start: 20190819, end: 20190819
  2. MESNA. [Suspect]
     Active Substance: MESNA
     Indication: PROPHYLAXIS
     Dosage: 500
     Route: 042
     Dates: start: 20190814, end: 20190817
  3. PANTOPRAZOLE [Concomitant]
     Active Substance: PANTOPRAZOLE
     Dosage: 40,MG,DAILY
     Route: 048
     Dates: start: 20190612
  4. VALACYCLOVIR [Concomitant]
     Active Substance: VALACYCLOVIR HYDROCHLORIDE
     Dosage: 500,MG,DAILY
     Route: 048
     Dates: start: 20190611, end: 20190828
  5. APIXABAN [Concomitant]
     Active Substance: APIXABAN
     Dosage: 5,MG,TWICE DAILY
     Route: 048
     Dates: start: 20190830, end: 20190910
  6. LEVETIRACETAM. [Concomitant]
     Active Substance: LEVETIRACETAM
     Dosage: 750,MG,TWICE DAILY
     Route: 048
     Dates: start: 20190819, end: 20190918
  7. FILGRASTIM [Concomitant]
     Active Substance: FILGRASTIM
     Dosage: 480,UG,DAILY
     Route: 058
     Dates: start: 20190820, end: 20190826
  8. PENTAMIDINE [Concomitant]
     Active Substance: PENTAMIDINE
     Dosage: 300,MG,ONCE
     Route: 042
     Dates: start: 20190910, end: 20190910
  9. ONDANSETRON [Concomitant]
     Active Substance: ONDANSETRON
     Dosage: 16,MG,DAILY
     Route: 042
     Dates: start: 20190814, end: 20190816
  10. ENOXAPARIN [Concomitant]
     Active Substance: ENOXAPARIN
     Dosage: 90,MG,TWICE DAILY
     Route: 042
     Dates: start: 20190614
  11. ENOXAPARIN [Concomitant]
     Active Substance: ENOXAPARIN
     Dosage: 100,MG,TWICE DAILY
     Route: 048
     Dates: start: 20190830, end: 20190901
  12. ACETAMINOPHEN. [Concomitant]
     Active Substance: ACETAMINOPHEN
     Dosage: 650,MG,ONCE
     Route: 048
     Dates: start: 20190819, end: 20190819
  13. DOCUSATE;SENNA [Concomitant]
     Dosage: 8.6-50,MG,AS NECESSARY
     Route: 048
     Dates: start: 20190522
  14. COMPAZINE [Concomitant]
     Active Substance: PROCHLORPERAZINE MALEATE
     Dosage: 10,MG,AS NECESSARY
     Route: 048
     Dates: start: 20190613
  15. PENTAMIDINE [Concomitant]
     Active Substance: PENTAMIDINE
     Dosage: 300,MG,ONCE
     Route: 042
     Dates: start: 20190820, end: 20190820
  16. MAGNESIUM SULFATE. [Concomitant]
     Active Substance: MAGNESIUM SULFATE
     Dosage: 16,OTHER,AS NECESSARY
     Route: 042
     Dates: start: 20190822, end: 20190826
  17. FLUDARABINE [Suspect]
     Active Substance: FLUDARABINE PHOSPHATE
     Indication: BONE MARROW CONDITIONING REGIMEN
     Dosage: 30
     Route: 042
     Dates: start: 20190814, end: 20190816
  18. ONDANSETRON [Concomitant]
     Active Substance: ONDANSETRON
     Dosage: 8,MG,AS NECESSARY
     Route: 048
     Dates: start: 20190613
  19. BUTALBITAL, ACETAMINOPHEN, AND CAFFEINE [Concomitant]
     Active Substance: ACETAMINOPHEN\BUTALBITAL\CAFFEINE
     Dosage: 50-325-40,MG,AS NECESSARY
     Route: 048
     Dates: start: 20190827
  20. HEPARIN [Concomitant]
     Active Substance: HEPARIN SODIUM
     Dosage: 200,OTHER,ONCE
     Route: 042
     Dates: start: 20190817, end: 20190817
  21. MAGNESIUM OXIDE. [Concomitant]
     Active Substance: MAGNESIUM OXIDE
     Dosage: 500,MG,ONCE
     Route: 048
     Dates: start: 20190821, end: 20190821
  22. CYCLOPHOSPHAMIDE. [Suspect]
     Active Substance: CYCLOPHOSPHAMIDE
     Indication: BONE MARROW CONDITIONING REGIMEN
     Dosage: 500
     Route: 042
     Dates: start: 20190814, end: 20190816
  23. VALACYCLOVIR [Concomitant]
     Active Substance: VALACYCLOVIR HYDROCHLORIDE
     Dosage: 500,MG,DAILY
     Route: 048
     Dates: start: 20190911, end: 20190911
  24. SULFAMETHOXAZOLE AND TRIMETHOPRIM [Concomitant]
     Active Substance: SULFAMETHOXAZOLE\TRIMETHOPRIM
     Dosage: 800-160,MG,OTHER
     Route: 048
     Dates: start: 20190612
  25. ONDANSETRON [Concomitant]
     Active Substance: ONDANSETRON
     Dosage: 8,MG,ONCE
     Route: 048
     Dates: start: 20190820, end: 20190820
  26. ONDANSETRON [Concomitant]
     Active Substance: ONDANSETRON
     Dosage: 8,MG,ONCE
     Route: 042
     Dates: start: 20190826, end: 20190826
  27. TRAMADOL. [Concomitant]
     Active Substance: TRAMADOL
     Dosage: 50,MG,AS NECESSARY
     Route: 048
     Dates: start: 20190617
  28. BUTALBITAL, ACETAMINOPHEN, AND CAFFEINE [Concomitant]
     Active Substance: ACETAMINOPHEN\BUTALBITAL\CAFFEINE
     Dosage: 50-325-40,MG,AS NECESSARY
     Route: 048
     Dates: start: 20190701
  29. LEVETIRACETAM. [Concomitant]
     Active Substance: LEVETIRACETAM
     Dosage: 750,MG,DAILY
     Route: 048
     Dates: start: 20190919, end: 20190921
  30. ACETAMINOPHEN. [Concomitant]
     Active Substance: ACETAMINOPHEN
     Dosage: 650,MG,AS NECESSARY
     Route: 048
     Dates: start: 20190824, end: 20190828
  31. ACETAMINOPHEN. [Concomitant]
     Active Substance: ACETAMINOPHEN
     Dosage: 650,MG,AS NECESSARY
     Route: 048
     Dates: start: 20190907, end: 20190908
  32. ONDANSETRON [Concomitant]
     Active Substance: ONDANSETRON
     Dosage: 8,MG,ONCE
     Route: 042
     Dates: start: 20190905, end: 20190905
  33. NORMAL SALINE [Concomitant]
     Active Substance: SODIUM CHLORIDE
     Dosage: 500,ML,ONCE 0.9%
     Route: 033
     Dates: start: 20190905, end: 20190905
  34. CLARITIN-D NOS [Concomitant]
     Active Substance: LORATADINE\PSEUDOEPHEDRINE SULFATE
     Dosage: 10-240,UG,ONCE
     Route: 048
     Dates: start: 20190819, end: 20190819
  35. TRAMADOL. [Concomitant]
     Active Substance: TRAMADOL
     Dosage: 50,MG,ONCE
     Route: 048
     Dates: start: 20190826, end: 20190826
  36. NORMAL SALINE [Concomitant]
     Active Substance: SODIUM CHLORIDE
     Dosage: 1000,ML,AS NECESSARY 0.9%
     Route: 042
     Dates: start: 20190814, end: 20190816
  37. HEPARIN [Concomitant]
     Active Substance: HEPARIN SODIUM
     Dosage: 200,OTHER,ONCE
     Route: 042
     Dates: start: 20190904, end: 20190904
  38. APIXABAN [Concomitant]
     Active Substance: APIXABAN
     Dosage: 5,MG,TWICE DAILY
     Route: 048
     Dates: start: 20190818, end: 20190830
  39. DIPHENHYDRAMIN [Concomitant]
     Active Substance: DIPHENHYDRAMINE
     Dosage: 50,MG,ONCE
     Route: 048
     Dates: start: 20190819, end: 20190819

REACTIONS (3)
  - Muscular weakness [Recovered/Resolved]
  - Back pain [Recovered/Resolved]
  - Periorbital infection [Recovered/Resolved]

NARRATIVE: CASE EVENT DATE: 20190825
